FAERS Safety Report 8933823 (Version 1)
Quarter: 2012Q4

REPORT INFORMATION
  Report Type: 
  Country: US (occurrence: US)
  Receive Date: 20121129
  Receipt Date: 20121129
  Transmission Date: 20130627
  Serious: Yes (Congenital Anomaly, Other)
  Sender: FDA-Public Use
  Company Number: US-ELI_LILLY_AND_COMPANY-US201211005881

PATIENT
  Sex: Female

DRUGS (1)
  1. PROZAC [Suspect]
     Dosage: UNK
     Route: 064

REACTIONS (6)
  - Spina bifida [Unknown]
  - Arnold-Chiari malformation [Unknown]
  - Paralysis [Unknown]
  - Mechanical ventilation [Unknown]
  - Life support [Unknown]
  - Foetal exposure during pregnancy [Unknown]
